FAERS Safety Report 24093884 (Version 1)
Quarter: 2024Q3

REPORT INFORMATION
  Report Type: Spontaneous
  Country: NL (occurrence: NL)
  Receive Date: 20240716
  Receipt Date: 20240716
  Transmission Date: 20241017
  Serious: Yes (Hospitalization)
  Sender: BOEHRINGER INGELHEIM
  Company Number: None

PATIENT
  Age: 78 Year
  Sex: Female
  Weight: 77 kg

DRUGS (16)
  1. EMPAGLIFLOZIN [Suspect]
     Active Substance: EMPAGLIFLOZIN
     Indication: Cardiac failure
     Dates: start: 20240402, end: 20240615
  2. ATENOLOL TABLET  50MG / Brand name not specified [Concomitant]
     Indication: Product used for unknown indication
  3. MACROGOL/ZOUTEN PDR V DRANK (MOVIC/MOLAX/GEN) / MOVICOLON POEDER VOOR [Concomitant]
     Indication: Product used for unknown indication
     Dosage: POEDER VOOR DRANK
  4. DIGOXINE TABLET 0,125MG / LANOXIN TABLET 0,125MG [Concomitant]
     Indication: Product used for unknown indication
  5. ATORVASTATIN [Concomitant]
     Active Substance: ATORVASTATIN
     Indication: Product used for unknown indication
  6. DABIGATRAN ETEXILATE [Concomitant]
     Active Substance: DABIGATRAN ETEXILATE
     Indication: Product used for unknown indication
  7. COLECALCIFEROL CAPSULE    800IE / Brand name not specified [Concomitant]
     Indication: Product used for unknown indication
     Dosage: 800 EENHEDEN
  8. METAMIZOLE SODIUM [Concomitant]
     Active Substance: METAMIZOLE SODIUM
     Indication: Product used for unknown indication
  9. MELATONINE CAPSULE  1MG / Brand name not specified [Concomitant]
     Indication: Product used for unknown indication
  10. PARACETAMOL CAPSULE 500MG / Brand name not specified [Concomitant]
     Indication: Product used for unknown indication
  11. VENLAFAXINE CAPSULE MGA  75MG / Brand name not specified [Concomitant]
     Indication: Product used for unknown indication
     Dosage: CAPSULE MET GEREGULEERDE AFGIFTE,
  12. EPLERENON TABLET 25MG / Brand name not specified [Concomitant]
     Indication: Product used for unknown indication
  13. PANTOPRAZOL INFVLST 0,667MG/ML / Brand name not specified [Concomitant]
     Indication: Product used for unknown indication
     Dosage: INFUSIEVLOEISTOF, 0,667 MG/ML (MILLIGRAM PER MILLILITER)
  14. SACUBITRIL/VALSARTAN TABLET 49/51MG / Brand name not specified [Concomitant]
     Indication: Product used for unknown indication
     Dosage: 49/51 MG (MILLIGRAM)
  15. IPRATROPIUM AEROSOL 20UG/DO / Brand name not specified [Concomitant]
     Indication: Product used for unknown indication
     Dosage: AEROSOL, 20 ?G/DOSIS (MICROGRAM PER DOSIS)
  16. AMOXICILLINE/CLAVULAANZUUR TABLET 500/125MG / AUGMENTIN TABLET 500/125 [Concomitant]
     Indication: Product used for unknown indication
     Dosage: 500/125 MG (MILLIGRAM)

REACTIONS (2)
  - Respiratory moniliasis [Recovering/Resolving]
  - Pyelonephritis fungal [Recovering/Resolving]
